FAERS Safety Report 9698614 (Version 4)
Quarter: 2018Q2

REPORT INFORMATION
  Report Type: Report from Study
  Country: RU (occurrence: RU)
  Receive Date: 20131120
  Receipt Date: 20180418
  Transmission Date: 20180711
  Serious: Yes (Death, Hospitalization, Congenital Anomaly, Other)
  Sender: FDA-Public Use
  Company Number: RU-VIIV HEALTHCARE LIMITED-Z0021603A

PATIENT
  Age: 0 Year
  Sex: Male

DRUGS (4)
  1. ABACAVIR. [Concomitant]
     Active Substance: ABACAVIR
     Indication: ACQUIRED IMMUNODEFICIENCY SYNDROME
     Dosage: 600 MG, QD
     Route: 064
     Dates: start: 20110923
  2. RITONAVIR. [Concomitant]
     Active Substance: RITONAVIR
     Indication: ACQUIRED IMMUNODEFICIENCY SYNDROME
     Dosage: 100 MG, QD
     Route: 064
     Dates: start: 20110923
  3. ATAZANAVIR. [Concomitant]
     Active Substance: ATAZANAVIR SULFATE
     Indication: ACQUIRED IMMUNODEFICIENCY SYNDROME
     Dosage: 300 MG, QD
     Route: 064
     Dates: start: 20110923
  4. DOLUTEGRAVIR [Suspect]
     Active Substance: DOLUTEGRAVIR
     Indication: HIV INFECTION
     Dosage: 50 MG, QD
     Route: 064
     Dates: start: 20110923, end: 20130404

REACTIONS (1)
  - Multiple cardiac defects [Fatal]

NARRATIVE: CASE EVENT DATE: 20131002
